FAERS Safety Report 4855721-3 (Version None)
Quarter: 2005Q4

REPORT INFORMATION
  Report Type: 
  Country: None (occurrence: None)
  Receive Date: 20051216
  Receipt Date: 20050316
  Transmission Date: 20060501
  Serious: Yes (Other)
  Sender: FDA-Public Use
  Company Number: JP-ROCHE-399514

PATIENT
  Age: 57 Year
  Sex: Male

DRUGS (3)
  1. TAMIFLU [Suspect]
     Indication: INFLUENZA
     Route: 048
     Dates: start: 20050310, end: 20050311
  2. HALCION [Concomitant]
     Route: 048
     Dates: start: 20030615, end: 20050311
  3. DEPAS [Concomitant]
     Route: 048
     Dates: start: 20030615, end: 20050311

REACTIONS (4)
  - RED BLOOD CELL COUNT DECREASED [None]
  - RENAL FAILURE [None]
  - RHABDOMYOLYSIS [None]
  - THROMBOCYTOPENIA [None]
